FAERS Safety Report 15634943 (Version 1)
Quarter: 2018Q4

REPORT INFORMATION
  Report Type: Spontaneous
  Country: ES (occurrence: ES)
  Receive Date: 20181119
  Receipt Date: 20181119
  Transmission Date: 20190205
  Serious: Yes (Other)
  Sender: FDA-Public Use
  Company Number: ES-BAYER-2018-209185

PATIENT
  Age: 62 Year
  Sex: Female

DRUGS (3)
  1. SORAFENIB (RAF KINASE INHIBITOR) [Suspect]
     Active Substance: SORAFENIB
     Indication: HEPATOCELLULAR CARCINOMA
     Dosage: 400 MG DAILY DOSE
     Dates: start: 2011
  2. SORAFENIB (RAF KINASE INHIBITOR) [Suspect]
     Active Substance: SORAFENIB
     Indication: HEPATOCELLULAR CARCINOMA
     Dosage: 400 MG DAILY DOSE
  3. SORAFENIB (RAF KINASE INHIBITOR) [Suspect]
     Active Substance: SORAFENIB
     Indication: HEPATOCELLULAR CARCINOMA
     Dosage: UNK
     Dates: start: 201101

REACTIONS (14)
  - Muscular weakness [None]
  - Decreased appetite [None]
  - Myalgia [Recovering/Resolving]
  - Arthralgia [Recovering/Resolving]
  - Hypothyroidism [None]
  - Blood pressure increased [None]
  - Pain [None]
  - Fatigue [None]
  - Asthenia [None]
  - Skin toxicity [None]
  - Dry skin [None]
  - Hepatic cirrhosis [None]
  - Alopecia [None]
  - Weight decreased [None]

NARRATIVE: CASE EVENT DATE: 201512
